FAERS Safety Report 24739176 (Version 2)
Quarter: 2025Q1

REPORT INFORMATION
  Report Type: Report from Study
  Country: US (occurrence: US)
  Receive Date: 20241216
  Receipt Date: 20250228
  Transmission Date: 20250409
  Serious: Yes (Other)
  Sender: GLAXOSMITHKLINE
  Company Number: US-GSKCCFUS-Case-02169819_AE-119522

PATIENT

DRUGS (11)
  1. BELIMUMAB [Suspect]
     Active Substance: BELIMUMAB
     Indication: Product used for unknown indication
     Dosage: 200 MG, WE
     Route: 058
     Dates: start: 201207, end: 201211
  2. BELIMUMAB [Suspect]
     Active Substance: BELIMUMAB
     Indication: Product used for unknown indication
     Dosage: 200 MG/ML, Q2W
     Route: 058
     Dates: start: 20241120, end: 20241122
  3. LYRICA [Concomitant]
     Active Substance: PREGABALIN
     Indication: Product used for unknown indication
     Dosage: 1 DF, BID
     Route: 048
     Dates: start: 20241120
  4. METHOTREXATE [Concomitant]
     Active Substance: METHOTREXATE
     Indication: Product used for unknown indication
  5. HYDROXYCHLOROQUINE [Concomitant]
     Active Substance: HYDROXYCHLOROQUINE
     Indication: Product used for unknown indication
     Dosage: 200 MG, BID
     Route: 048
  6. IMURAN [Concomitant]
     Active Substance: AZATHIOPRINE
     Indication: Product used for unknown indication
     Dosage: 2 DF, BID
     Route: 048
     Dates: start: 20241120
  7. LIDODEPOMEDROL [Concomitant]
     Indication: Arthralgia
  8. LIDODEPOMEDROL [Concomitant]
     Indication: Fatigue
  9. LIDODEPOMEDROL [Concomitant]
     Indication: Systemic lupus erythematosus
  10. FLEXERIL [Concomitant]
     Active Substance: CYCLOBENZAPRINE HYDROCHLORIDE
     Indication: Fibromyalgia
     Dosage: 1 DF, BID
     Route: 048
     Dates: start: 20241120
  11. CYMBALTA [Concomitant]
     Active Substance: DULOXETINE HYDROCHLORIDE
     Indication: Fibromyalgia

REACTIONS (18)
  - Hip fracture [Unknown]
  - Systemic lupus erythematosus [Not Recovered/Not Resolved]
  - Postoperative wound infection [Recovered/Resolved]
  - Vulval cancer [Unknown]
  - Nephrolithiasis [Unknown]
  - Sjogren^s syndrome [Unknown]
  - Alpha haemolytic streptococcal infection [Recovered/Resolved]
  - Fibromyalgia [Unknown]
  - Device related infection [Unknown]
  - Osteoporosis [Unknown]
  - Ocular icterus [Unknown]
  - Acne [Unknown]
  - Ovarian cyst [Unknown]
  - Obesity [Unknown]
  - Raynaud^s phenomenon [Unknown]
  - Foot fracture [Unknown]
  - Product prescribing error [Unknown]
  - Inappropriate schedule of product administration [Unknown]

NARRATIVE: CASE EVENT DATE: 20131106
